FAERS Safety Report 8981985 (Version 3)
Quarter: 2013Q3

REPORT INFORMATION
  Report Type: Spontaneous
  Country: GB (occurrence: GB)
  Receive Date: 20121223
  Receipt Date: 20130930
  Transmission Date: 20140515
  Serious: Yes (Disabling)
  Sender: FDA-Public Use
  Company Number: GB-009507513-1212GBR008677

PATIENT
  Age: 62 Year
  Sex: Male
  Weight: 78 kg

DRUGS (6)
  1. SIMVASTATIN [Suspect]
     Dosage: 20 MG, UNK
     Route: 048
  2. SIMVASTATIN [Suspect]
     Dosage: 40 MG, UNK
     Route: 048
  3. SIMVASTATIN [Suspect]
     Dosage: 40 MG, UNK
     Route: 048
  4. SIMVASTATIN [Suspect]
     Dosage: 20 MG, UNK
     Route: 048
  5. IRBESARTAN [Suspect]
     Dosage: 75 MG, UNK
     Route: 048
     Dates: start: 20111107, end: 20120102
  6. PIZOTYLINE [Concomitant]
     Dosage: 40 MG, UNK

REACTIONS (3)
  - Anxiety [Recovered/Resolved]
  - Depression [Recovered/Resolved]
  - Emotional distress [Recovered/Resolved]
